FAERS Safety Report 15203338 (Version 1)
Quarter: 2018Q3

REPORT INFORMATION
  Report Type: Spontaneous
  Country: US (occurrence: US)
  Receive Date: 20180627
  Receipt Date: 20180627
  Transmission Date: 20181010
  Serious: Yes (Hospitalization)
  Sender: FDA-Public Use
  Company Number: None

PATIENT
  Age: 60 Year
  Sex: Male
  Weight: 83.9 kg

DRUGS (1)
  1. VARENICLINE TARTRATE [Suspect]
     Active Substance: VARENICLINE TARTRATE
     Indication: SMOKING CESSATION THERAPY
     Route: 048
     Dates: start: 20180626

REACTIONS (6)
  - Chest pain [None]
  - Back pain [None]
  - Dyspnoea [None]
  - Hypophagia [None]
  - Alcohol use [None]
  - Withdrawal syndrome [None]

NARRATIVE: CASE EVENT DATE: 20180626
